FAERS Safety Report 23456660 (Version 1)
Quarter: 2024Q1

REPORT INFORMATION
  Report Type: Spontaneous
  Country: CZ (occurrence: CZ)
  Receive Date: 20240130
  Receipt Date: 20240130
  Transmission Date: 20240409
  Serious: Yes (Other)
  Sender: FDA-Public Use
  Company Number: CZ-Accord-400889

PATIENT
  Age: 47 Year
  Sex: Male

DRUGS (2)
  1. IMATINIB [Suspect]
     Active Substance: IMATINIB
     Indication: Chronic myeloid leukaemia
     Dosage: 200 MILLIGRAM, QD
     Route: 065
     Dates: start: 201904
  2. IMATINIB [Suspect]
     Active Substance: IMATINIB
     Dosage: 400 MILLIGRAM, QD
     Route: 065
     Dates: start: 201908, end: 201912

REACTIONS (5)
  - Immobile [Recovered/Resolved]
  - Pain in extremity [Recovered/Resolved]
  - Diarrhoea [Unknown]
  - Fatigue [Unknown]
  - Treatment failure [Unknown]
